FAERS Safety Report 9908309 (Version 1)
Quarter: 2014Q1

REPORT INFORMATION
  Report Type: Spontaneous
  Country: US (occurrence: None)
  Receive Date: 20140214
  Receipt Date: 20140214
  Transmission Date: 20141002
  Serious: Yes (Hospitalization)
  Sender: FDA-Public Use
  Company Number: None

PATIENT
  Age: 77 Year
  Sex: Male
  Weight: 77.27 kg

DRUGS (9)
  1. CIPRO [Suspect]
     Indication: URINARY TRACT INFECTION
     Dosage: RECENT
     Route: 048
  2. LASIX [Concomitant]
  3. LISINOPRIL [Concomitant]
  4. SPIRINOLACTONE [Concomitant]
  5. NAMENDA [Concomitant]
  6. PRESERVISION [Concomitant]
  7. NEXIUM [Concomitant]
  8. LOVAZA [Concomitant]
  9. COUMADIN [Concomitant]

REACTIONS (4)
  - Confusional state [None]
  - Hallucination [None]
  - Delirium [None]
  - Mental status changes [None]
